FAERS Safety Report 10984093 (Version 1)
Quarter: 2015Q2

REPORT INFORMATION
  Report Type: Spontaneous
  Country: GB (occurrence: None)
  Receive Date: 20150401
  Receipt Date: 20150401
  Transmission Date: 20150821
  Serious: Yes (Hospitalization, Other)
  Sender: FDA-Public Use
  Company Number: 2015-10948

PATIENT
  Age: 77 Year
  Sex: Male

DRUGS (1)
  1. EYLEA [Suspect]
     Active Substance: AFLIBERCEPT
     Indication: MACULAR DEGENERATION
     Route: 031
     Dates: start: 20150221, end: 20150221

REACTIONS (5)
  - Eye pain [None]
  - Corneal oedema [None]
  - Visual acuity reduced [None]
  - Intraocular pressure increased [None]
  - Endophthalmitis [None]

NARRATIVE: CASE EVENT DATE: 20150222
